FAERS Safety Report 11289540 (Version 1)
Quarter: 2015Q3

REPORT INFORMATION
  Report Type: Spontaneous
  Country: FR (occurrence: FR)
  Receive Date: 20150721
  Receipt Date: 20150721
  Transmission Date: 20151125
  Serious: Yes (Other)
  Sender: FDA-Public Use
  Company Number: FR-GLAXOSMITHKLINE-FR2015GSK103869

PATIENT
  Age: 53 Year

DRUGS (7)
  1. ETOPOSIDE. [Suspect]
     Active Substance: ETOPOSIDE
     Indication: ANAPLASTIC LARGE-CELL LYMPHOMA
     Dosage: 200 MG/M2, QD
     Dates: start: 20150124, end: 20150127
  2. ALKERAN [Suspect]
     Active Substance: MELPHALAN
     Indication: ANAPLASTIC LARGE-CELL LYMPHOMA
     Dosage: 140 MG/M2, QD
     Route: 042
     Dates: start: 20150128, end: 20150128
  3. LEVACT (BENDAMUSTINE HYDROCHLORIDE) [Suspect]
     Active Substance: BENDAMUSTINE HYDROCHLORIDE
     Indication: PRODUCT USED FOR UNKNOWN INDICATION
     Dosage: 200 MG/M2, QD
     Route: 042
     Dates: start: 20150122, end: 20150123
  4. ZOPHREN [Concomitant]
     Active Substance: ONDANSETRON
  5. METHYLPREDNISOLONE. [Concomitant]
     Active Substance: METHYLPREDNISOLONE
  6. CYTARABINE. [Suspect]
     Active Substance: CYTARABINE
     Indication: ANAPLASTIC LARGE-CELL LYMPHOMA
     Dosage: 200 MG/M2, BID
     Dates: start: 20150124, end: 20150127
  7. EMEND [Suspect]
     Active Substance: APREPITANT
     Indication: PRODUCT USED FOR UNKNOWN INDICATION

REACTIONS (1)
  - Aplasia [Recovered/Resolved]

NARRATIVE: CASE EVENT DATE: 20150131
